FAERS Safety Report 7270340-X (Version None)
Quarter: 2011Q1

REPORT INFORMATION
  Report Type: 
  Country: None (occurrence: None)
  Receive Date: 20110202
  Receipt Date: 20110131
  Transmission Date: 20110831
  Serious: Yes (Other)
  Sender: FDA-Public Use
  Company Number: FR-EISAI INC-E2080-00328-SPO-FR

PATIENT
  Age: 22 Year
  Sex: Female
  Weight: 47 kg

DRUGS (5)
  1. MICROPAKINE [Concomitant]
     Indication: EPILEPSY
     Route: 048
     Dates: start: 19930101
  2. RIVOTRIL [Concomitant]
     Indication: EPILEPSY
     Route: 048
     Dates: start: 19890101
  3. KEPPRA [Concomitant]
     Indication: EPILEPSY
     Route: 048
     Dates: start: 20050101
  4. INOVELON [Suspect]
     Indication: ENCEPHALOPATHY
     Dosage: UNKNOWN
     Route: 048
     Dates: start: 20100601, end: 20100101
  5. LUTENYL [Interacting]
     Indication: MENORRHAGIA
     Route: 048
     Dates: start: 20080101

REACTIONS (2)
  - MENOMETRORRHAGIA [None]
  - DRUG INTERACTION [None]
